FAERS Safety Report 10763551 (Version 1)
Quarter: 2015Q1

REPORT INFORMATION
  Report Type: Spontaneous
  Country: FR (occurrence: FR)
  Receive Date: 20150204
  Receipt Date: 20150204
  Transmission Date: 20150721
  Serious: Yes (Hospitalization)
  Sender: FDA-Public Use
  Company Number: FR-SA-2015SA011482

PATIENT
  Age: 92 Year
  Sex: Male

DRUGS (8)
  1. OFLOCET [Suspect]
     Active Substance: OFLOXACIN
     Indication: PROSTATITIS
     Route: 048
     Dates: start: 20141129, end: 20141205
  2. FUROSEMIDE. [Suspect]
     Active Substance: FUROSEMIDE
     Indication: ARRHYTHMIA
     Route: 048
     Dates: end: 20141207
  3. RAMIPRIL. [Concomitant]
     Active Substance: RAMIPRIL
     Dosage: 5 NOS QD
  4. XATRAL LP [Concomitant]
     Active Substance: ALFUZOSIN
     Dosage: 10 MG
  5. FINASTERIDE. [Concomitant]
     Active Substance: FINASTERIDE
  6. CARDENSIEL [Concomitant]
     Active Substance: BISOPROLOL FUMARATE
     Dosage: 2.5 NOS BID
  7. COUMADINE [Suspect]
     Active Substance: WARFARIN SODIUM
     Indication: ARRHYTHMIA
     Dosage: STRENGTH: 5 MG
     Route: 048
     Dates: start: 201408, end: 20141129
  8. MACROGOL [Concomitant]
     Active Substance: POLYETHYLENE GLYCOLS

REACTIONS (1)
  - Haematuria [Recovered/Resolved]

NARRATIVE: CASE EVENT DATE: 20141129
